FAERS Safety Report 4863378-0 (Version None)
Quarter: 2005Q4

REPORT INFORMATION
  Report Type: 
  Country: None (occurrence: None)
  Receive Date: 20051222
  Receipt Date: 20041108
  Transmission Date: 20060501
  Serious: No
  Sender: FDA-Public Use
  Company Number: US-GLAXOSMITHKLINE-A0533073A

PATIENT
  Age: 76 Year
  Sex: Male

DRUGS (1)
  1. FLONASE [Suspect]
     Indication: NASAL CONGESTION
     Dosage: 1SPR PER DAY
     Route: 045
     Dates: start: 20031101

REACTIONS (3)
  - AGEUSIA [None]
  - ANOSMIA [None]
  - EPISTAXIS [None]
